FAERS Safety Report 5456877-4 (Version None)
Quarter: 2007Q3

REPORT INFORMATION
  Report Type: 
  Country: None (occurrence: None)
  Receive Date: 20070917
  Receipt Date: 20070917
  Transmission Date: 20080115
  Serious: Yes (Life-Threatening, Hospitalization)
  Sender: FDA-Public Use
  Company Number: None

PATIENT
  Sex: Female
  Weight: 56.6996 kg

DRUGS (2)
  1. TAXUS EXPRESS STENT BOSTON SCIENTIFIC [Suspect]
     Indication: CORONARY ARTERY OCCLUSION
     Dates: start: 20050901, end: 20050901
  2. TAXUS EXPRESS STENT BOSTON SCIENTIFIC [Suspect]
     Indication: CORONARY ARTERY OCCLUSION
     Dates: start: 20050901, end: 20050901

REACTIONS (3)
  - DEVICE FAILURE [None]
  - OPERATIVE HAEMORRHAGE [None]
  - PHARMACEUTICAL PRODUCT COMPLAINT [None]
